FAERS Safety Report 9325109 (Version 1)
Quarter: 2013Q2

REPORT INFORMATION
  Report Type: Spontaneous
  Country: US (occurrence: US)
  Receive Date: 20130603
  Receipt Date: 20130603
  Transmission Date: 20140414
  Serious: Yes (Hospitalization)
  Sender: FDA-Public Use
  Company Number: US-B.I. PHARMACEUTICALS,INC./RIDGEFIELD-2013-BI-14942BP

PATIENT
  Sex: Male

DRUGS (14)
  1. SPIRIVA [Suspect]
     Indication: CHRONIC OBSTRUCTIVE PULMONARY DISEASE
     Dosage: 18 MCG
     Route: 055
  2. MULTAQ [Concomitant]
     Route: 048
  3. ASPIRIN [Concomitant]
     Route: 048
  4. LASIX [Concomitant]
     Route: 048
  5. COUMADIN [Concomitant]
     Route: 048
  6. NYSTATIN [Concomitant]
     Route: 048
  7. LEVOTHYROXINE [Concomitant]
     Route: 048
  8. TOPROL [Concomitant]
     Route: 048
  9. MULTIVITAMIN [Concomitant]
     Route: 048
  10. HUMALOG [Concomitant]
     Route: 058
  11. XANAX [Concomitant]
     Route: 048
  12. PREDNISONE [Concomitant]
     Route: 048
  13. LEVEMIR [Concomitant]
     Route: 058
  14. FOLIC ACID [Concomitant]
     Route: 048

REACTIONS (6)
  - Dyspnoea [Recovered/Resolved]
  - Renal failure [Recovered/Resolved]
  - Cardiac disorder [Recovered/Resolved]
  - Fungal infection [Recovered/Resolved]
  - Blister [Recovered/Resolved]
  - Incorrect route of drug administration [Unknown]
